FAERS Safety Report 12114096 (Version 1)
Quarter: 2016Q1

REPORT INFORMATION
  Report Type: Spontaneous
  Country: US (occurrence: None)
  Receive Date: 20160224
  Receipt Date: 20160224
  Transmission Date: 20160526
  Serious: Yes (Other)
  Sender: FDA-Public Use
  Company Number: None

PATIENT
  Age: 49 Year
  Sex: Female
  Weight: 68.04 kg

DRUGS (14)
  1. VIIBRYD [Suspect]
     Active Substance: VILAZODONE HYDROCHLORIDE
     Indication: ANXIETY
     Dates: start: 20160217, end: 20160221
  2. CRANBERRY. [Concomitant]
     Active Substance: CRANBERRY
  3. VIIBRYD [Suspect]
     Active Substance: VILAZODONE HYDROCHLORIDE
     Indication: DEPRESSION
     Dates: start: 20160217, end: 20160221
  4. XANAX [Concomitant]
     Active Substance: ALPRAZOLAM
  5. MAGNESIUM [Concomitant]
     Active Substance: MAGNESIUM
  6. VITAMIN E [Concomitant]
     Active Substance: .ALPHA.-TOCOPHEROL
  7. SINGULAIR [Concomitant]
     Active Substance: MONTELUKAST SODIUM
  8. APPLE PECTIN [Concomitant]
  9. TOPROL XL [Concomitant]
     Active Substance: METOPROLOL SUCCINATE
  10. CALCIUM [Concomitant]
     Active Substance: CALCIUM
  11. WELBUTERIN [Concomitant]
  12. ZOCOR [Concomitant]
     Active Substance: SIMVASTATIN
  13. GINKGO BILOBA [Concomitant]
     Active Substance: GINKGO
  14. OMEGA [Concomitant]
     Active Substance: CONVALLARIA MAJALIS\CRATAEGUS LAEVIGATA LEAF\PROXYPHYLLINE

REACTIONS (4)
  - Anxiety [None]
  - Feeling abnormal [None]
  - Thinking abnormal [None]
  - Panic attack [None]

NARRATIVE: CASE EVENT DATE: 20160221
